FAERS Safety Report 21369088 (Version 1)
Quarter: 2022Q3

REPORT INFORMATION
  Report Type: Spontaneous
  Country: US (occurrence: US)
  Receive Date: 20220923
  Receipt Date: 20220923
  Transmission Date: 20221027
  Serious: No
  Sender: FDA-Public Use
  Company Number: US-BRISTOL-MYERS SQUIBB COMPANY-2022-111021

PATIENT
  Age: 77 Year
  Sex: Female

DRUGS (1)
  1. SPRYCEL [Suspect]
     Active Substance: DASATINIB
     Indication: Chronic leukaemia
     Route: 065
     Dates: end: 20220922

REACTIONS (2)
  - Dizziness [Unknown]
  - Abdominal discomfort [Unknown]
